FAERS Safety Report 12314313 (Version 1)
Quarter: 2016Q2

REPORT INFORMATION
  Report Type: Spontaneous
  Country: US (occurrence: US)
  Receive Date: 20160428
  Receipt Date: 20160428
  Transmission Date: 20160815
  Serious: Yes (Other)
  Sender: FDA-Public Use
  Company Number: US-MALLINCKRODT-T201504506

PATIENT
  Sex: Female

DRUGS (1)
  1. OPTIRAY [Suspect]
     Active Substance: IOVERSOL
     Indication: PRODUCT USED FOR UNKNOWN INDICATION
     Dosage: 100 ML, SINGLE
     Route: 065

REACTIONS (2)
  - Erythema [Recovered/Resolved]
  - Throat tightness [Recovered/Resolved]
